FAERS Safety Report 4721662-5 (Version None)
Quarter: 2005Q3

REPORT INFORMATION
  Report Type: 
  Country: None (occurrence: None)
  Receive Date: 20050721
  Receipt Date: 20050210
  Transmission Date: 20060218
  Serious: No
  Sender: FDA-Public Use
  Company Number: US-BRISTOL-MYERS SQUIBB COMPANY-12856662

PATIENT
  Age: 79 Year
  Sex: Female
  Weight: 100 kg

DRUGS (4)
  1. COUMADIN [Suspect]
     Indication: CARDIAC VALVE DISEASE
     Dosage: INITIATED AT 5 MG DAILY, CHANGED TO 3.5 MG 2 DAYS PER WEEK, AND 2.5 MG TWO DAYS PER WEEK.
     Route: 048
  2. LOPRESSOR [Concomitant]
  3. LANOXIN [Concomitant]
  4. LASIX [Concomitant]

REACTIONS (5)
  - CONTUSION [None]
  - DRY SKIN [None]
  - FATIGUE [None]
  - VARICOSE VEIN [None]
  - WEIGHT INCREASED [None]
